FAERS Safety Report 24572067 (Version 1)
Quarter: 2024Q4

REPORT INFORMATION
  Report Type: Spontaneous
  Country: US (occurrence: US)
  Receive Date: 20241101
  Receipt Date: 20241101
  Transmission Date: 20250114
  Serious: Yes (Other)
  Sender: AMGEN
  Company Number: US-AMGEN-USASP2024213943

PATIENT
  Age: 55 Year
  Sex: Male

DRUGS (1)
  1. REPATHA [Suspect]
     Active Substance: EVOLOCUMAB
     Indication: Product used for unknown indication
     Dosage: 140 MILLIGRAM (PRODUCT STRENGTH:140 MG)
     Route: 058
     Dates: start: 2024

REACTIONS (4)
  - Arthropathy [Unknown]
  - Product storage error [Unknown]
  - Intercepted product administration error [Unknown]
  - Product label confusion [Unknown]

NARRATIVE: CASE EVENT DATE: 20241026
